FAERS Safety Report 25138758 (Version 2)
Quarter: 2025Q2

REPORT INFORMATION
  Report Type: Spontaneous
  Country: GB (occurrence: GB)
  Receive Date: 20250331
  Receipt Date: 20250527
  Transmission Date: 20250716
  Serious: Yes (Hospitalization, Other)
  Sender: AMGEN
  Company Number: GB-PFIZER INC-PV202500036129

PATIENT
  Age: 82 Year
  Sex: Male

DRUGS (1)
  1. ENBREL [Suspect]
     Active Substance: ETANERCEPT
     Indication: Psoriasis
     Dosage: 50 MG, WEEKLY
     Route: 058

REACTIONS (1)
  - Kidney rupture [Unknown]
